FAERS Safety Report 7959546-1 (Version None)
Quarter: 2011Q4

REPORT INFORMATION
  Report Type: 
  Country: None (occurrence: None)
  Receive Date: 20111206
  Receipt Date: 20111123
  Transmission Date: 20120403
  Serious: Yes (Other)
  Sender: FDA-Public Use
  Company Number: CA-ROCHE-GNE293886

PATIENT
  Sex: Female
  Weight: 88.53 kg

DRUGS (3)
  1. XOLAIR [Suspect]
     Dosage: 300 MG, 1/MONTH
     Route: 058
     Dates: start: 20091201
  2. XOLAIR [Suspect]
     Indication: ASTHMA
     Dosage: 300 UNK, UNK
     Route: 058
     Dates: start: 20070214
  3. XOLAIR [Suspect]
     Dosage: 300 MG, 1/MONTH
     Route: 058
     Dates: start: 20091027

REACTIONS (7)
  - PAIN [None]
  - ADVERSE REACTION [None]
  - ANXIETY [None]
  - SWELLING [None]
  - HEART RATE INCREASED [None]
  - PULMONARY CONGESTION [None]
  - COUGH [None]
